FAERS Safety Report 25632128 (Version 1)
Quarter: 2025Q3

REPORT INFORMATION
  Report Type: Spontaneous
  Country: US (occurrence: US)
  Receive Date: 20250801
  Receipt Date: 20250801
  Transmission Date: 20251020
  Serious: Yes (Other)
  Sender: BLUEPRINT MEDICINES
  Company Number: US-Blueprint Medicines Corporation-2025-AER-01641

PATIENT
  Age: 68 Year
  Sex: Female

DRUGS (1)
  1. AYVAKIT [Suspect]
     Active Substance: AVAPRITINIB
     Indication: Mastocytoma
     Route: 065
     Dates: start: 20240214

REACTIONS (4)
  - Anaphylactic reaction [Unknown]
  - Fatigue [Unknown]
  - Pain [Unknown]
  - Tryptase increased [Unknown]

NARRATIVE: CASE EVENT DATE: 20250601
